FAERS Safety Report 15756300 (Version 1)
Quarter: 2018Q4

REPORT INFORMATION
  Report Type: Spontaneous
  Country: US (occurrence: US)
  Receive Date: 20181224
  Receipt Date: 20181224
  Transmission Date: 20190205
  Serious: No
  Sender: FDA-Public Use
  Company Number: US-TEVA-2018-US-985272

PATIENT
  Sex: Female

DRUGS (1)
  1. AMLODIPINE AND VALSARTAN TABLETS [Suspect]
     Active Substance: AMLODIPINE\VALSARTAN
     Indication: BLOOD PRESSURE ABNORMAL
     Dosage: 1 DF = AMLODIPINE 10 MG + VALSARTAN 320 MG
     Route: 065
     Dates: start: 2014

REACTIONS (4)
  - Sensation of foreign body [Unknown]
  - Pharyngeal cyst [Unknown]
  - Hyperactive pharyngeal reflex [Unknown]
  - Recalled product administered [Unknown]

NARRATIVE: CASE EVENT DATE: 201811
